FAERS Safety Report 11441828 (Version 1)
Quarter: 2015Q3

REPORT INFORMATION
  Report Type: Spontaneous
  Country: IT (occurrence: IT)
  Receive Date: 20150901
  Receipt Date: 20150901
  Transmission Date: 20151125
  Serious: Yes (Hospitalization)
  Sender: FDA-Public Use
  Company Number: IT-TEVA-589608ISR

PATIENT
  Age: 24 Year
  Sex: Female

DRUGS (1)
  1. CARBAMAZEPINE. [Suspect]
     Active Substance: CARBAMAZEPINE
     Indication: TRIGEMINAL NEURALGIA
     Dosage: 400 MILLIGRAM DAILY;
     Route: 065

REACTIONS (3)
  - Central nervous system lesion [Recovered/Resolved]
  - Visual impairment [Recovered/Resolved]
  - Drug withdrawal syndrome [Recovered/Resolved]
